FAERS Safety Report 17566771 (Version 1)
Quarter: 2020Q1

REPORT INFORMATION
  Report Type: Spontaneous
  Country: US (occurrence: US)
  Receive Date: 20200320
  Receipt Date: 20200320
  Transmission Date: 20200409
  Serious: No
  Sender: FDA-Public Use
  Company Number: US-UNITED THERAPEUTICS-UNT-2020-004374

PATIENT
  Age: 43 Year
  Sex: Female
  Weight: 38.55 kg

DRUGS (2)
  1. REMODULIN [Suspect]
     Active Substance: TREPROSTINIL
     Indication: PULMONARY ARTERIAL HYPERTENSION
     Dosage: UNK, CONTINUING
     Route: 041
     Dates: start: 20160816
  2. REMODULIN [Suspect]
     Active Substance: TREPROSTINIL
     Dosage: 0.115 ?G/KG, CONTINUING
     Route: 041

REACTIONS (2)
  - Vascular device occlusion [Unknown]
  - Device infusion issue [Unknown]

NARRATIVE: CASE EVENT DATE: 20200315
